FAERS Safety Report 6076666-X (Version None)
Quarter: 2009Q1

REPORT INFORMATION
  Report Type: 
  Country: None (occurrence: None)
  Receive Date: 20090213
  Receipt Date: 20090204
  Transmission Date: 20090719
  Serious: Yes (Hospitalization)
  Sender: FDA-Public Use
  Company Number: PHHY2009JP02776

PATIENT
  Age: 72 Year
  Sex: Female

DRUGS (2)
  1. FAMCICLOVIR [Suspect]
     Indication: HERPES ZOSTER
     Dosage: 1500MG PER DAY
     Route: 048
     Dates: start: 20090122, end: 20090123
  2. BUFEXAMAC [Concomitant]
     Indication: INFLAMMATION
     Dosage: UNK
     Dates: start: 20090122

REACTIONS (2)
  - CHILLS [None]
  - COORDINATION ABNORMAL [None]
